FAERS Safety Report 9078447 (Version 1)
Quarter: 2013Q1

REPORT INFORMATION
  Report Type: Report from Study
  Country: US (occurrence: US)
  Receive Date: 20130130
  Receipt Date: 20130130
  Transmission Date: 20140127
  Serious: No
  Sender: FDA-Public Use
  Company Number: US-ABBOTT-12P-163-0974148-00

PATIENT
  Age: 60 Year
  Sex: Female

DRUGS (20)
  1. HUMIRA [Suspect]
     Indication: SPONDYLITIS
     Dates: start: 20100511
  2. HUMIRA [Suspect]
     Route: 050
  3. HUMIRA [Suspect]
  4. OXYCODONE [Concomitant]
     Indication: PAIN
     Dosage: 5/325MG AS NEEDED
  5. TRAMADOL [Concomitant]
     Indication: PAIN
     Dosage: PT. DID NOT USE IT VERY MUCH
  6. GABAPENTIN [Concomitant]
     Indication: PAIN
  7. TYLENOL [Concomitant]
     Indication: PAIN
  8. LOVAZA [Concomitant]
     Indication: BLOOD CHOLESTEROL INCREASED
  9. CRESTOR [Concomitant]
     Indication: BLOOD CHOLESTEROL INCREASED
  10. CARVEDILOL [Concomitant]
     Indication: HYPERTENSION
  11. ESTROGEL [Concomitant]
     Indication: MENOPAUSE
  12. MEDROXYPROGESTERONE [Concomitant]
     Indication: MENOPAUSE
  13. ESTRACE [Concomitant]
     Indication: MENOPAUSE
     Dosage: CREAM, TWICE A WEEK
  14. CLARITIN D [Concomitant]
     Indication: GASTRITIS
  15. PROBIOTICS [Concomitant]
     Indication: PRODUCT USED FOR UNKNOWN INDICATION
  16. ASACOL [Concomitant]
     Indication: COLITIS
  17. RESTASIS [Concomitant]
     Indication: DRY EYE
     Route: 047
  18. CALCIUM [Concomitant]
     Indication: OSTEOPOROSIS
  19. BABY ASPIRIN [Concomitant]
     Indication: PRODUCT USED FOR UNKNOWN INDICATION
  20. MIRALAX [Concomitant]
     Indication: CONSTIPATION
     Dosage: DAILY

REACTIONS (5)
  - Drug dose omission [Unknown]
  - Drug ineffective [Not Recovered/Not Resolved]
  - Rheumatoid arthritis [Unknown]
  - Sinusitis [Recovered/Resolved]
  - Drug dose omission [Unknown]
